FAERS Safety Report 5080636-8 (Version None)
Quarter: 2006Q3

REPORT INFORMATION
  Report Type: 
  Country: None (occurrence: None)
  Receive Date: 20060815
  Receipt Date: 20060807
  Transmission Date: 20061208
  Serious: Yes (Other)
  Sender: FDA-Public Use
  Company Number: US-BOEHRINGER INGELHEIM PHARMACEUTICALS, INC.-2006-BP-09336BP

PATIENT
  Age: 51 Year
  Sex: Female

DRUGS (2)
  1. VIRAMUNE [Suspect]
     Indication: HIV INFECTION
     Dates: start: 20040101
  2. TRUVADA [Concomitant]
     Dates: start: 20040101

REACTIONS (2)
  - BLOOD HIV RNA INCREASED [None]
  - RENAL FAILURE [None]
